FAERS Safety Report 16868016 (Version 1)
Quarter: 2019Q3

REPORT INFORMATION
  Report Type: Spontaneous
  Country: CA (occurrence: CA)
  Receive Date: 20190930
  Receipt Date: 20190930
  Transmission Date: 20191005
  Serious: Yes (Hospitalization, Other)
  Sender: FDA-Public Use
  Company Number: CA-PFIZER INC-2801075

PATIENT
  Age: 32 Year
  Sex: Female

DRUGS (11)
  1. PHENYLEPHRINE HCL [Suspect]
     Active Substance: PHENYLEPHRINE HYDROCHLORIDE
     Indication: CAESAREAN SECTION
     Dosage: 50 UG, FREQ: 1 MINUTE; INTERVAL: 1
     Route: 041
  2. ATROPINE. [Concomitant]
     Active Substance: ATROPINE
     Indication: HYPOTENSION
  3. BUPIVACAINE. [Concomitant]
     Active Substance: BUPIVACAINE
     Indication: CAESAREAN SECTION
     Dosage: 12 MG, UNK
     Route: 037
  4. FENTANYL CITRATE. [Suspect]
     Active Substance: FENTANYL CITRATE
     Indication: CAESAREAN SECTION
     Dosage: 20 UG, UNK
     Route: 037
  5. FENTANYL CITRATE. [Suspect]
     Active Substance: FENTANYL CITRATE
     Indication: SPINAL ANAESTHESIA
  6. MORPHINE SULFATE. [Suspect]
     Active Substance: MORPHINE SULFATE
     Indication: CAESAREAN SECTION
     Dosage: 150 UG, UNK
     Route: 037
  7. EPHEDRINE. [Concomitant]
     Active Substance: EPHEDRINE
     Indication: HYPOTENSION
  8. MORPHINE SULFATE. [Suspect]
     Active Substance: MORPHINE SULFATE
     Indication: SPINAL ANAESTHESIA
  9. PHENYLEPHRINE HCL [Suspect]
     Active Substance: PHENYLEPHRINE HYDROCHLORIDE
     Dosage: 25 UG, FREQ: 1 MINUTE; INTERVAL: 1
     Route: 041
  10. ATROPINE. [Concomitant]
     Active Substance: ATROPINE
     Indication: BRADYCARDIA
     Dosage: 0.6 MG, UNK
     Route: 040
  11. EPHEDRINE. [Concomitant]
     Active Substance: EPHEDRINE
     Indication: BRADYCARDIA
     Dosage: 10 MG, UNK
     Route: 040

REACTIONS (4)
  - Neuralgia [Not Recovered/Not Resolved]
  - Anterior spinal artery syndrome [Recovered/Resolved with Sequelae]
  - Spinal cord injury [Recovered/Resolved with Sequelae]
  - Maternal exposure during pregnancy [Not Recovered/Not Resolved]
